FAERS Safety Report 7933672-5 (Version None)
Quarter: 2011Q4

REPORT INFORMATION
  Report Type: 
  Country: None (occurrence: None)
  Receive Date: 20111118
  Receipt Date: 20111108
  Transmission Date: 20120403
  Serious: Yes (Life-Threatening, Hospitalization)
  Sender: FDA-Public Use
  Company Number: MPS1-1000580

PATIENT
  Age: 50 Year
  Sex: Female
  Weight: 40 kg

DRUGS (1)
  1. ALDURAZYME [Suspect]
     Indication: MUCOPOLYSACCHARIDOSIS I
     Dosage: 1000 IU/KG, QW, INTRAVENOUS
     Route: 042
     Dates: start: 20021118

REACTIONS (8)
  - HAEMOTHORAX [None]
  - RESPIRATORY FAILURE [None]
  - PERICARDIAL EFFUSION [None]
  - METASTASES TO PLEURA [None]
  - GENERAL PHYSICAL HEALTH DETERIORATION [None]
  - LUNG ADENOCARCINOMA [None]
  - CONSTIPATION [None]
  - CARDIAC FAILURE [None]
